FAERS Safety Report 8998563 (Version 2)
Quarter: 2013Q2

REPORT INFORMATION
  Report Type: Spontaneous
  Country: US (occurrence: US)
  Receive Date: 20130103
  Receipt Date: 20130501
  Transmission Date: 20140414
  Serious: Yes (Other)
  Sender: FDA-Public Use
  Company Number: US-ASTRAZENECA-2012SE95444

PATIENT
  Age: 48 Year
  Sex: Female
  Weight: 127.9 kg

DRUGS (4)
  1. CRESTOR [Suspect]
     Indication: BLOOD CHOLESTEROL ABNORMAL
     Route: 048
     Dates: start: 2008, end: 201212
  2. CRESTOR [Suspect]
     Indication: BLOOD CHOLESTEROL ABNORMAL
     Route: 048
     Dates: start: 20121220
  3. BLOOD PRESSURE MEDS [Concomitant]
     Indication: BLOOD PRESSURE ABNORMAL
  4. TOO MANY MEDS [Concomitant]
     Indication: BLOOD PRESSURE ABNORMAL

REACTIONS (11)
  - Myocardial infarction [Unknown]
  - Weight increased [Unknown]
  - Arthritis [Recovered/Resolved]
  - Blood glucose increased [Unknown]
  - Pain in extremity [Not Recovered/Not Resolved]
  - Muscle spasms [Not Recovered/Not Resolved]
  - Blood cholesterol increased [Unknown]
  - Arthralgia [Not Recovered/Not Resolved]
  - Arthralgia [Unknown]
  - Arthralgia [Recovered/Resolved]
  - Intentional drug misuse [Unknown]
